FAERS Safety Report 9988814 (Version 1)
Quarter: 2013Q4

REPORT INFORMATION
  Report Type: Spontaneous
  Country: US (occurrence: None)
  Receive Date: 20131021
  Receipt Date: 20131021
  Transmission Date: 20140711
  Serious: Yes (Other)
  Sender: FDA-Public Use
  Company Number: VAL_02760_2013

PATIENT
  Age: 46 Year
  Sex: Male

DRUGS (3)
  1. BROMOCRIPTINE [Suspect]
     Indication: CATATONIA
     Dosage: (DF)
  2. AMANTADINE [Suspect]
     Indication: CATATONIA
     Dosage: (DF)
  3. DANTROLENE [Suspect]
     Indication: CATATONIA
     Dosage: (DF)

REACTIONS (2)
  - Catatonia [None]
  - No therapeutic response [None]
